FAERS Safety Report 6355710-6 (Version None)
Quarter: 2009Q3

REPORT INFORMATION
  Report Type: 
  Country: None (occurrence: None)
  Receive Date: 20090910
  Receipt Date: 20090903
  Transmission Date: 20100115
  Serious: Yes (Death)
  Sender: FDA-Public Use
  Company Number: 2009JP002472

PATIENT
  Age: 65 Year
  Sex: Male
  Weight: 50 kg

DRUGS (7)
  1. PROGRAF [Suspect]
     Indication: RHEUMATOID ARTHRITIS
     Dosage: 2.5 MG, UID/QD, ORAL
     Route: 048
     Dates: start: 20050518, end: 20070801
  2. RHEUMATREX [Suspect]
     Indication: RHEUMATOID ARTHRITIS
     Dosage: 8 MG, WEEKLY, ORAL
     Route: 048
     Dates: start: 20040706, end: 20050518
  3. PREDNISOLONE [Concomitant]
  4. SHIOSOL (SODIUM AUROTHIOMALATE) INJECTION [Concomitant]
  5. MOBIC (MELOXICAM) CAPSULE [Concomitant]
  6. TAKEPRON (LANSOPRAZOLE) TABLET [Concomitant]
  7. MUCOSTA (REBAMIPIDE) TABLET [Concomitant]

REACTIONS (1)
  - LUNG NEOPLASM MALIGNANT [None]
